FAERS Safety Report 20345579 (Version 3)
Quarter: 2022Q4

REPORT INFORMATION
  Report Type: Report from Study
  Country: US (occurrence: US)
  Receive Date: 20220118
  Receipt Date: 20221031
  Transmission Date: 20230112
  Serious: No
  Sender: FDA-Public Use
  Company Number: US-NOVARTISTESTPH-NVSC2022US008997

PATIENT
  Age: 16 Year
  Sex: Male

DRUGS (2)
  1. OMNITROPE [Suspect]
     Active Substance: SOMATROPIN
     Indication: Short stature
     Dosage: UNK
     Route: 065
  2. OMNITROPE [Suspect]
     Active Substance: SOMATROPIN
     Dosage: 3.8 MG, QD
     Route: 058
     Dates: start: 20220117

REACTIONS (7)
  - Lip swelling [Unknown]
  - Joint swelling [Unknown]
  - Pain in extremity [Unknown]
  - Hyperhidrosis [Unknown]
  - Eye swelling [Unknown]
  - Musculoskeletal stiffness [Unknown]
  - Wrong technique in product usage process [Unknown]

NARRATIVE: CASE EVENT DATE: 20220915
